FAERS Safety Report 19725859 (Version 1)
Quarter: 2021Q3

REPORT INFORMATION
  Report Type: Spontaneous
  Country: US (occurrence: US)
  Receive Date: 20210819
  Receipt Date: 20210819
  Transmission Date: 20211014
  Serious: No
  Sender: FDA-Public Use
  Company Number: US-MANNKIND CORPORATION-2021MK000034

PATIENT
  Age: 56 Year
  Sex: Female
  Weight: 64.92 kg

DRUGS (2)
  1. AFREZZA [Suspect]
     Active Substance: INSULIN HUMAN
     Indication: TYPE 1 DIABETES MELLITUS
     Dates: start: 202010
  2. AFREZZA [Suspect]
     Active Substance: INSULIN HUMAN
     Dates: start: 202010

REACTIONS (2)
  - Blood glucose increased [Unknown]
  - Fatigue [Unknown]
